FAERS Safety Report 11827823 (Version 1)
Quarter: 2015Q4

REPORT INFORMATION
  Report Type: Spontaneous
  Country: US (occurrence: US)
  Receive Date: 20151211
  Receipt Date: 20151211
  Transmission Date: 20160305
  Serious: No
  Sender: FDA-Public Use
  Company Number: US-BAYER-2015-487357

PATIENT
  Age: 91 Year
  Sex: Male
  Weight: 90.7 kg

DRUGS (4)
  1. MIRALAX [Suspect]
     Active Substance: POLYETHYLENE GLYCOL 3350
     Indication: CONSTIPATION
     Dosage: 1 DF, QD
     Route: 048
     Dates: start: 20151203
  2. GLYBURIDE. [Concomitant]
     Active Substance: GLYBURIDE
  3. LOVASTATIN. [Concomitant]
     Active Substance: LOVASTATIN
  4. LISINOPRIL. [Concomitant]
     Active Substance: LISINOPRIL

REACTIONS (2)
  - Drug effect incomplete [None]
  - Product use issue [None]

NARRATIVE: CASE EVENT DATE: 201512
